FAERS Safety Report 6115416-5 (Version None)
Quarter: 2009Q1

REPORT INFORMATION
  Report Type: 
  Country: None (occurrence: None)
  Receive Date: 20090313
  Receipt Date: 20090304
  Transmission Date: 20090719
  Serious: Yes (Death)
  Sender: FDA-Public Use
  Company Number: FR-AVENTIS-200910869FR

PATIENT
  Age: 93 Year
  Sex: Female

DRUGS (1)
  1. ARAVA [Suspect]
     Route: 048
     Dates: start: 20060706, end: 20060101

REACTIONS (2)
  - DEATH [None]
  - INTENTIONAL DRUG MISUSE [None]
